FAERS Safety Report 19506304 (Version 2)
Quarter: 2021Q3

REPORT INFORMATION
  Report Type: Report from Study
  Country: None (occurrence: US)
  Receive Date: 20210708
  Receipt Date: 20210729
  Transmission Date: 20211014
  Serious: Yes (Hospitalization)
  Sender: FDA-Public Use
  Company Number: US-GLOBAL BLOOD THERAPEUTICS INC-US-GBT-21-02235

PATIENT
  Age: 10 Year
  Sex: Female

DRUGS (14)
  1. VOXELOTOR. [Suspect]
     Active Substance: VOXELOTOR
     Indication: SICKLE CELL DISEASE
     Route: 048
     Dates: start: 20210412
  2. FAMOTIDINE. [Concomitant]
     Active Substance: FAMOTIDINE
     Indication: SICKLE CELL DISEASE
     Dosage: AS NEEDED
     Route: 048
     Dates: start: 20200721
  3. LORATADIN [Concomitant]
     Active Substance: LORATADINE
     Indication: ASTHMA
     Route: 048
  4. SYMBICORT [Concomitant]
     Active Substance: BUDESONIDE\FORMOTEROL FUMARATE DIHYDRATE
     Indication: SICKLE CELL DISEASE
     Dosage: 2 PUFF
     Dates: start: 20170823
  5. ADVAIR HFA [Concomitant]
     Active Substance: FLUTICASONE PROPIONATE\SALMETEROL XINAFOATE
     Indication: ASTHMA
     Dosage: 2 PUFFS
     Dates: start: 20170502
  6. MONTELUKAST [Concomitant]
     Active Substance: MONTELUKAST SODIUM
     Indication: ASTHMA
     Route: 048
     Dates: start: 20181128
  7. POLYETHYLENE GLYCOL 3350 WITH ELECTROLYTES [Concomitant]
     Indication: SICKLE CELL DISEASE
     Route: 048
     Dates: start: 20141023
  8. AMLODIPINE [Concomitant]
     Active Substance: AMLODIPINE BESYLATE
     Indication: SICKLE CELL DISEASE
     Route: 048
     Dates: start: 20191007
  9. VOXELOTOR. [Suspect]
     Active Substance: VOXELOTOR
     Route: 048
     Dates: start: 20210624
  10. URSODIOL. [Concomitant]
     Active Substance: URSODIOL
     Indication: PULMONARY HYPERTENSION
     Route: 048
     Dates: start: 20160520
  11. HYDROXYUREA. [Concomitant]
     Active Substance: HYDROXYUREA
     Indication: SICKLE CELL DISEASE
     Route: 048
     Dates: start: 20131027
  12. ACETAMINOPHEN. [Concomitant]
     Active Substance: ACETAMINOPHEN
     Indication: SICKLE CELL DISEASE
     Dosage: 2 MILILITERS, AS NEEDED
     Route: 048
     Dates: start: 20110626
  13. ALBUTEROL. [Concomitant]
     Active Substance: ALBUTEROL
     Indication: ASTHMA
     Dosage: 2 PUFFS
     Dates: start: 20130209
  14. ENDARI [Concomitant]
     Active Substance: GLUTAMINE
     Indication: SICKLE CELL DISEASE
     Dates: start: 20181004

REACTIONS (2)
  - Sickle cell anaemia with crisis [Recovered/Resolved]
  - Hypoxia [Recovered/Resolved]

NARRATIVE: CASE EVENT DATE: 20210625
